FAERS Safety Report 8113163-1 (Version None)
Quarter: 2012Q1

REPORT INFORMATION
  Report Type: 
  Country: None (occurrence: None)
  Receive Date: 20120203
  Receipt Date: 20120127
  Transmission Date: 20120608
  Serious: Yes (Hospitalization)
  Sender: FDA-Public Use
  Company Number: DE-AMGEN-DEUSP2012001898

PATIENT
  Age: 87 Year
  Sex: Female
  Weight: 45 kg

DRUGS (2)
  1. CALCIUM + D3 [Concomitant]
     Route: 048
  2. PROLIA [Suspect]
     Indication: PRODUCT USED FOR UNKNOWN INDICATION
     Dosage: 60 MG, UNK
     Dates: start: 20110501, end: 20110801

REACTIONS (2)
  - FALL [None]
  - RIB FRACTURE [None]
